FAERS Safety Report 9496189 (Version 3)
Quarter: 2013Q4

REPORT INFORMATION
  Report Type: Report from Study
  Country: US (occurrence: US)
  Receive Date: 20130904
  Receipt Date: 20131018
  Transmission Date: 20140711
  Serious: Yes (Death, Hospitalization)
  Sender: FDA-Public Use
  Company Number: US-BRISTOL-MYERS SQUIBB COMPANY-19234558

PATIENT
  Age: 60 Year
  Sex: Male
  Weight: 114.3 kg

DRUGS (4)
  1. IPILIMUMAB [Suspect]
     Indication: MALIGNANT MELANOMA
     Dosage: TOTAL DOSE-356MG?LAST DOSE-06JUN13
     Route: 042
     Dates: start: 20121003
  2. DECADRON [Suspect]
  3. LOVENOX [Concomitant]
  4. PROZAC [Concomitant]

REACTIONS (3)
  - Metastases to central nervous system [Fatal]
  - Somnolence [Not Recovered/Not Resolved]
  - Hyperglycaemia [Not Recovered/Not Resolved]
